FAERS Safety Report 12196511 (Version 2)
Quarter: 2016Q2

REPORT INFORMATION
  Report Type: Spontaneous
  Country: JP (occurrence: JP)
  Receive Date: 20160321
  Receipt Date: 20160405
  Transmission Date: 20160815
  Serious: Yes (Other)
  Sender: FDA-Public Use
  Company Number: JP-PURDUE PHARMA-GBR-2016-0034704

PATIENT
  Age: 48 Year
  Sex: Male

DRUGS (4)
  1. MUCOSTA [Concomitant]
     Active Substance: REBAMIPIDE
     Indication: SPONDYLOLYSIS
     Dosage: UNK
     Route: 048
     Dates: start: 20160129
  2. NORSPAN [Suspect]
     Active Substance: BUPRENORPHINE
     Indication: SPONDYLOLYSIS
     Dosage: 5 MCG, Q1H
     Route: 062
     Dates: start: 20160129, end: 20160307
  3. VOLTAREN [Concomitant]
     Active Substance: DICLOFENAC SODIUM
     Indication: SPONDYLOLYSIS
     Dosage: UNK
     Route: 048
     Dates: start: 20160129
  4. PRIMPERAN [Concomitant]
     Active Substance: METOCLOPRAMIDE HYDROCHLORIDE
     Indication: SPONDYLOLYSIS
     Dosage: UNK
     Route: 048
     Dates: start: 20160129

REACTIONS (4)
  - Panic disorder [Unknown]
  - Abnormal behaviour [Unknown]
  - Depression [Unknown]
  - Blood pressure increased [Unknown]

NARRATIVE: CASE EVENT DATE: 20160305
